FAERS Safety Report 7520179-2 (Version None)
Quarter: 2011Q2

REPORT INFORMATION
  Report Type: 
  Country: None (occurrence: None)
  Receive Date: 20110602
  Receipt Date: 20110125
  Transmission Date: 20111010
  Serious: No
  Sender: FDA-Public Use
  Company Number: US-BAYER-2011-035890

PATIENT
  Age: 29 Year
  Sex: Female
  Weight: 48.526 kg

DRUGS (1)
  1. ALEVE (CAPLET) [Suspect]
     Dosage: BOTTLE COUNT 24S

REACTIONS (1)
  - DRUG INEFFECTIVE [None]
